FAERS Safety Report 6434102-5 (Version None)
Quarter: 2009Q4

REPORT INFORMATION
  Report Type: 
  Country: None (occurrence: None)
  Receive Date: 20091110
  Receipt Date: 20090819
  Transmission Date: 20100525
  Serious: No
  Sender: FDA-Public Use
  Company Number: US-ASTRAZENECA-2009SE12564

PATIENT
  Sex: Male

DRUGS (4)
  1. PRILOSEC OTC [Suspect]
     Route: 048
  2. FOSAMAX [Concomitant]
     Dosage: UNKNOWN
  3. VITAMINS                           /90003601/ [Concomitant]
     Dosage: UNKNOWN
  4. ASPIRIN [Concomitant]
     Dosage: UNKNOWN

REACTIONS (4)
  - GAIT DISTURBANCE [None]
  - INCORRECT DRUG ADMINISTRATION DURATION [None]
  - NERVOUS SYSTEM DISORDER [None]
  - TREMOR [None]
